FAERS Safety Report 4645426-6 (Version None)
Quarter: 2005Q2

REPORT INFORMATION
  Report Type: 
  Country: None (occurrence: None)
  Receive Date: 20050425
  Receipt Date: 20050415
  Transmission Date: 20051028
  Serious: Yes (Life-Threatening)
  Sender: FDA-Public Use
  Company Number: 2005-04-1189

PATIENT
  Age: 39 Year
  Sex: Male

DRUGS (4)
  1. PEG-INTRON [Suspect]
     Indication: HEPATITIS C
     Dosage: 40-80 MCG QW SUBCUTANEOU
     Route: 058
     Dates: start: 20050322, end: 20050404
  2. REBETOL [Suspect]
     Indication: HEPATITIS C
     Dosage: 800 MG ORAL
     Route: 048
     Dates: start: 20050322, end: 20050409
  3. STAVUDINE (DIDEHYDROTHYMIDINE) [Concomitant]
  4. LAMIVUDINE (3TC) [Concomitant]

REACTIONS (3)
  - HAEMORRHAGE INTRACRANIAL [None]
  - HEADACHE [None]
  - VOMITING [None]
